FAERS Safety Report 7209554-3 (Version None)
Quarter: 2011Q1

REPORT INFORMATION
  Report Type: 
  Country: None (occurrence: None)
  Receive Date: 20110104
  Receipt Date: 20101227
  Transmission Date: 20110831
  Serious: Yes (Hospitalization)
  Sender: FDA-Public Use
  Company Number: US-ABBOTT-10P-163-0694203-00

PATIENT
  Sex: Female
  Weight: 81.72 kg

DRUGS (3)
  1. LUPRON DEPOT [Suspect]
     Dates: start: 20000101, end: 20000101
  2. LUPRON DEPOT [Suspect]
     Dates: start: 20000101, end: 20000101
  3. LUPRON DEPOT [Suspect]
     Indication: UTERINE LEIOMYOMA
     Dates: start: 20101019, end: 20101019

REACTIONS (2)
  - HAEMATOCRIT DECREASED [None]
  - MENORRHAGIA [None]
